FAERS Safety Report 6917440-9 (Version None)
Quarter: 2010Q3

REPORT INFORMATION
  Report Type: 
  Country: None (occurrence: None)
  Receive Date: 20100810
  Receipt Date: 20100726
  Transmission Date: 20110219
  Serious: Yes (Hospitalization)
  Sender: FDA-Public Use
  Company Number: PHHY2010US49566

PATIENT
  Sex: Female
  Weight: 63.3 kg

DRUGS (2)
  1. NILOTINIB [Suspect]
     Indication: CHRONIC MYELOID LEUKAEMIA
     Dosage: 800 MG
     Route: 048
     Dates: start: 20100513, end: 20100614
  2. NILOTINIB [Suspect]
     Dosage: 400 MG (2 CAPS TWICE A DAY)
     Route: 048

REACTIONS (4)
  - ACUTE MYOCARDIAL INFARCTION [None]
  - CHEST DISCOMFORT [None]
  - TACHYCARDIA [None]
  - TROPONIN INCREASED [None]
